FAERS Safety Report 4865905-6 (Version None)
Quarter: 2005Q4

REPORT INFORMATION
  Report Type: 
  Country: None (occurrence: None)
  Receive Date: 20051223
  Receipt Date: 20050720
  Transmission Date: 20060501
  Serious: Yes (Hospitalization)
  Sender: FDA-Public Use
  Company Number: PHHO2005GB19666

PATIENT
  Age: 21 Year
  Sex: Female

DRUGS (5)
  1. SYNTOCINON [Suspect]
     Indication: LABOUR INDUCTION
     Dosage: 10 IU
     Dates: start: 20050719, end: 20050720
  2. PROSTINE [Concomitant]
     Indication: LABOUR INDUCTION
     Dosage: 3 MG
     Route: 067
     Dates: start: 20050719, end: 20050719
  3. KAPAKE [Concomitant]
     Route: 048
     Dates: start: 20050719
  4. PETHIDINE [Concomitant]
     Dosage: UNK, UNK
     Route: 030
     Dates: start: 20050719, end: 20050720
  5. PROCHLORPERAZINE [Concomitant]
     Dosage: UNK, UNK
     Route: 030
     Dates: start: 20050719, end: 20050720

REACTIONS (4)
  - ARTIFICIAL RUPTURE OF MEMBRANES [None]
  - CAESAREAN SECTION [None]
  - DRUG EXPOSURE DURING PREGNANCY [None]
  - PROLONGED LABOUR [None]
